FAERS Safety Report 5277097-2 (Version None)
Quarter: 2007Q1

REPORT INFORMATION
  Report Type: 
  Country: None (occurrence: None)
  Receive Date: 20070327
  Receipt Date: 20070321
  Transmission Date: 20070707
  Serious: Yes (Other)
  Sender: FDA-Public Use
  Company Number: US-GLAXOSMITHKLINE-A0644529A

PATIENT
  Age: 31 Year
  Sex: Female

DRUGS (3)
  1. BUPROPION HCL [Suspect]
     Indication: MAJOR DEPRESSION
  2. PRENATAL VITAMINS [Concomitant]
  3. ASPIRIN [Concomitant]

REACTIONS (1)
  - ABORTION INDUCED [None]
